FAERS Safety Report 18379532 (Version 1)
Quarter: 2020Q4

REPORT INFORMATION
  Report Type: Spontaneous
  Country: FR (occurrence: US)
  Receive Date: 20201014
  Receipt Date: 20201014
  Transmission Date: 20210114
  Serious: Yes (Hospitalization, Other)
  Sender: FDA-Public Use
  Company Number: FR-HIKMA PHARMACEUTICALS USA INC.-FR-H14001-20-52313

PATIENT
  Age: 53 Year
  Sex: Male

DRUGS (2)
  1. RUXOLITINIB [Concomitant]
     Active Substance: RUXOLITINIB
     Indication: GRAFT VERSUS HOST DISEASE
     Dosage: UNKNOWN
     Route: 065
  2. ACICLOVIR [Suspect]
     Active Substance: ACYCLOVIR
     Indication: VARICELLA ZOSTER PNEUMONIA
     Route: 042

REACTIONS (9)
  - Hyponatraemia [Recovering/Resolving]
  - Renal tubular dysfunction [Recovering/Resolving]
  - Hypophosphataemia [Recovering/Resolving]
  - Nephropathy toxic [Recovering/Resolving]
  - Hypouricaemia [Recovering/Resolving]
  - Hypokalaemia [Recovering/Resolving]
  - Polyuria [Recovering/Resolving]
  - Hypovolaemia [Recovering/Resolving]
  - Orthostatic hypotension [Recovering/Resolving]
